FAERS Safety Report 6794763-8 (Version None)
Quarter: 2010Q2

REPORT INFORMATION
  Report Type: 
  Country: None (occurrence: None)
  Receive Date: 20100625
  Receipt Date: 20100621
  Transmission Date: 20101027
  Serious: Yes (Hospitalization, Other)
  Sender: FDA-Public Use
  Company Number: US-BRISTOL-MYERS SQUIBB COMPANY-15158397

PATIENT
  Age: 74 Year
  Sex: Male
  Weight: 105 kg

DRUGS (7)
  1. COUMADIN [Suspect]
     Indication: THROMBOSIS
     Dates: start: 20091001
  2. VIAGRA [Suspect]
     Indication: ERECTILE DYSFUNCTION
     Dates: start: 20091101, end: 20090101
  3. SYNTHROID [Concomitant]
     Indication: THYROID FUNCTION TEST ABNORMAL
  4. VITAMIN D3 [Concomitant]
  5. VITAMIN B1 TAB [Concomitant]
  6. BETA-SITOSTEROL [Concomitant]
  7. LYCOPENE [Concomitant]

REACTIONS (3)
  - DRUG EFFECT DECREASED [None]
  - ERECTILE DYSFUNCTION [None]
  - THROMBOSIS [None]
